FAERS Safety Report 16007073 (Version 2)
Quarter: 2020Q2

REPORT INFORMATION
  Report Type: Spontaneous
  Country: US (occurrence: US)
  Receive Date: 20190226
  Receipt Date: 20200414
  Transmission Date: 20200713
  Serious: Yes (Other)
  Sender: FDA-Public Use
  Company Number: PHEH2019US008530

PATIENT
  Sex: Male

DRUGS (1)
  1. TASIGNA [Suspect]
     Active Substance: NILOTINIB
     Indication: CHRONIC MYELOID LEUKAEMIA
     Dosage: UNK UNK, BID
     Route: 048
     Dates: start: 20111008

REACTIONS (15)
  - Hyperkalaemia [Unknown]
  - Left ventricular hypertrophy [Unknown]
  - Injury [Unknown]
  - Tricuspid valve incompetence [Unknown]
  - Abdominal pain [Unknown]
  - Angiopathy [Unknown]
  - Hypomagnesaemia [Unknown]
  - Mitral valve incompetence [Unknown]
  - Arterial insufficiency [Unknown]
  - Anaemia [Unknown]
  - Arterial occlusive disease [Unknown]
  - Anxiety [Unknown]
  - Peripheral artery stenosis [Unknown]
  - Systolic dysfunction [Unknown]
  - Benign prostatic hyperplasia [Unknown]
